FAERS Safety Report 8881428 (Version 2)
Quarter: 2012Q4

REPORT INFORMATION
  Report Type: 
  Country: US (occurrence: US)
  Receive Date: 20121101
  Receipt Date: 20121120
  Transmission Date: 20130627
  Serious: Yes (Other)
  Sender: FDA-Public Use
  Company Number: US-PFIZER INC-2012269308

PATIENT
  Age: 59 Year
  Sex: Female
  Weight: 79.4 kg

DRUGS (9)
  1. CELEBREX [Suspect]
     Indication: DERMATOMYOSITIS
     Dosage: 200 mg, 2x/day
     Route: 048
     Dates: end: 20121023
  2. CELLCEPT [Concomitant]
     Dosage: UNK
  3. PHENOBARBITAL [Concomitant]
     Indication: SEIZURE
     Dosage: UNK
  4. REGLAN [Concomitant]
     Dosage: UNK
  5. NEURONTIN [Concomitant]
     Dosage: UNK
  6. PROTONIX [Concomitant]
     Dosage: UNK
  7. LIBRAX [Concomitant]
     Dosage: UNK
  8. PLAQUENIL [Concomitant]
     Dosage: UNK
  9. PREDNISONE [Concomitant]
     Dosage: UNK

REACTIONS (4)
  - Central nervous system lymphoma [Unknown]
  - Brain neoplasm [Unknown]
  - Fibromyalgia [Unknown]
  - Off label use [Unknown]
